FAERS Safety Report 4822548-8 (Version None)
Quarter: 2005Q4

REPORT INFORMATION
  Report Type: 
  Country: None (occurrence: None)
  Receive Date: 20051104
  Receipt Date: 20051104
  Transmission Date: 20060501
  Serious: Yes (Hospitalization, Other)
  Sender: FDA-Public Use
  Company Number: None

PATIENT
  Sex: Male
  Weight: 59.6 kg

DRUGS (9)
  1. DAUNOMYCIN [Suspect]
     Indication: ACUTE LYMPHOCYTIC LEUKAEMIA
     Dosage: SEE IMAGE
     Route: 042
     Dates: start: 20050927
  2. VINCRISTINE SULFATE [Suspect]
     Dosage: SEE IMAGE
     Route: 042
     Dates: start: 20050927
  3. PREDNISONE [Suspect]
     Dosage: SEE IMAGE
     Route: 048
     Dates: start: 20050927
  4. L-ASPARAGINASE [Suspect]
     Dosage: SEE IMAGE
     Route: 042
     Dates: start: 20050927
  5. METHOTREXATE [Suspect]
     Dosage: SEE IMAGE
     Route: 037
     Dates: start: 20050927
  6. BACTRIM [Concomitant]
  7. TEQUIN [Concomitant]
  8. ZITHROMAX [Concomitant]
  9. CEFEPIME [Concomitant]

REACTIONS (16)
  - ABDOMINAL PAIN [None]
  - ASPERGILLOSIS [None]
  - BRONCHIAL OBSTRUCTION [None]
  - CONSTIPATION [None]
  - FEBRILE NEUTROPENIA [None]
  - HERPES SIMPLEX [None]
  - LUNG CONSOLIDATION [None]
  - LYMPHOCYTIC INFILTRATION [None]
  - MOUTH ULCERATION [None]
  - PAIN [None]
  - PNEUMONIA [None]
  - PURPURA [None]
  - RASH ERYTHEMATOUS [None]
  - RASH MACULO-PAPULAR [None]
  - SPLENOMEGALY [None]
  - THROMBOCYTOPENIA [None]
